FAERS Safety Report 13507525 (Version 1)
Quarter: 2017Q2

REPORT INFORMATION
  Report Type: Spontaneous
  Country: US (occurrence: US)
  Receive Date: 20170502
  Receipt Date: 20170502
  Transmission Date: 20170830
  Serious: Yes (Other)
  Sender: FDA-Public Use
  Company Number: None

PATIENT
  Age: 39 Year
  Sex: Female

DRUGS (1)
  1. GILENYA [Suspect]
     Active Substance: FINGOLIMOD HYDROCHLORIDE
     Indication: MULTIPLE SCLEROSIS
     Route: 048
     Dates: start: 20161006, end: 20170428

REACTIONS (4)
  - Therapy cessation [None]
  - Dysarthria [None]
  - Malaise [None]
  - Gait disturbance [None]

NARRATIVE: CASE EVENT DATE: 20170428
